FAERS Safety Report 25731485 (Version 1)
Quarter: 2025Q3

REPORT INFORMATION
  Report Type: Spontaneous
  Country: US (occurrence: None)
  Receive Date: 20250827
  Receipt Date: 20250827
  Transmission Date: 20251021
  Serious: No
  Sender: FDA-CTU
  Company Number: None

PATIENT

DRUGS (10)
  1. CABOMETYX [Suspect]
     Active Substance: CABOZANTINIB S-MALATE
     Indication: Renal cancer
     Dosage: FREQUENCY : DAILY;?
     Route: 048
     Dates: start: 20240911
  2. UREA 40% CREAM [Concomitant]
     Dates: start: 20240911
  3. SENNOSIDES-DOCUSATE 8.6/50 [Concomitant]
     Dates: start: 20240911
  4. ALBUTEROL SULFATE 2.5MG/0.5ML NEB [Concomitant]
     Dates: start: 20240909
  5. FULTICASONE PROP NASAL SPRAY 50MCG [Concomitant]
     Dates: start: 20240909
  6. METFORMIN HYDROCHLORIDE [Concomitant]
     Active Substance: METFORMIN HYDROCHLORIDE
     Dates: start: 20240909
  7. OXYCODONE HYDROCHLORIDE [Concomitant]
     Active Substance: OXYCODONE HYDROCHLORIDE
     Dates: start: 20240909
  8. MAGNESIUM OXIDE TAB 400MG [Concomitant]
     Dates: start: 20240909
  9. MORPHINE SULFATE 15MG TABS [Concomitant]
     Dates: start: 20240909
  10. ONDANSETRON HCL TAB 8MG [Concomitant]
     Dates: start: 20240909

REACTIONS (2)
  - Fatigue [None]
  - Decreased appetite [None]

NARRATIVE: CASE EVENT DATE: 20250825
